FAERS Safety Report 10494699 (Version 1)
Quarter: 2014Q4

REPORT INFORMATION
  Report Type: Spontaneous
  Country: US (occurrence: None)
  Receive Date: 20141002
  Receipt Date: 20141002
  Transmission Date: 20150528
  Serious: Yes (Other)
  Sender: FDA-Public Use
  Company Number: None

PATIENT

DRUGS (1)
  1. FLUOROURACIL. [Suspect]
     Active Substance: FLUOROURACIL

REACTIONS (6)
  - Burns second degree [None]
  - Pain [None]
  - Decreased appetite [None]
  - Infection [None]
  - Insomnia [None]
  - Swelling [None]

NARRATIVE: CASE EVENT DATE: 20140809
